FAERS Safety Report 20219724 (Version 1)
Quarter: 2021Q4

REPORT INFORMATION
  Report Type: Spontaneous
  Country: US (occurrence: US)
  Receive Date: 20211222
  Receipt Date: 20211222
  Transmission Date: 20220303
  Serious: Yes (Hospitalization)
  Sender: FDA-Public Use
  Company Number: US-ELI_LILLY_AND_COMPANY-US202112009558

PATIENT
  Age: 70 Year
  Sex: Male

DRUGS (3)
  1. INSULIN LISPRO [Suspect]
     Active Substance: INSULIN LISPRO
     Indication: Type 1 diabetes mellitus
     Dosage: 65 U, DAILY
     Route: 058
     Dates: start: 1995
  2. INSULIN LISPRO [Suspect]
     Active Substance: INSULIN LISPRO
     Dosage: 65 U, DAILY
     Route: 058
     Dates: start: 20211213
  3. INSULIN LISPRO [Suspect]
     Active Substance: INSULIN LISPRO
     Dosage: 65 U, DAILY
     Route: 058
     Dates: start: 202112

REACTIONS (7)
  - Pancreatic atrophy [Unknown]
  - Helicobacter gastritis [Recovered/Resolved]
  - Hordeolum [Not Recovered/Not Resolved]
  - Vision blurred [Unknown]
  - Muscle spasms [Recovered/Resolved]
  - Blood glucose increased [Recovered/Resolved]
  - Drug ineffective [Recovered/Resolved]

NARRATIVE: CASE EVENT DATE: 20211201
